FAERS Safety Report 19169149 (Version 1)
Quarter: 2021Q2

REPORT INFORMATION
  Report Type: Report from Study
  Country: US (occurrence: US)
  Receive Date: 20210422
  Receipt Date: 20210422
  Transmission Date: 20210717
  Serious: Yes (Other)
  Sender: FDA-Public Use
  Company Number: US-MYLANLABS-2021M1023969

PATIENT
  Age: 63 Year
  Sex: Male

DRUGS (4)
  1. PREGABALIN. [Suspect]
     Active Substance: PREGABALIN
     Indication: EYE PAIN
     Dosage: 50 MILLIGRAM, BID, ESCALATING DOSE OF 50MG
     Route: 048
  2. MARCAINE [Suspect]
     Active Substance: BUPIVACAINE HYDROCHLORIDE
     Indication: EYE PAIN
     Dosage: 4 MILLILITER
     Route: 031
  3. DEPO?MEDROL [Suspect]
     Active Substance: METHYLPREDNISOLONE ACETATE
     Indication: EYE PAIN
     Dosage: 1 MILLILITER, 80MG/ML
     Route: 031
  4. GABAPENTIN. [Suspect]
     Active Substance: GABAPENTIN
     Indication: EYE PAIN
     Dosage: 600 MILLIGRAM, TID, THREE TIMES DAILY
     Route: 048

REACTIONS (1)
  - Drug ineffective [Unknown]
